FAERS Safety Report 6110225-5 (Version None)
Quarter: 2009Q1

REPORT INFORMATION
  Report Type: 
  Country: None (occurrence: None)
  Receive Date: 20090310
  Receipt Date: 20090302
  Transmission Date: 20090719
  Serious: Yes (Hospitalization)
  Sender: FDA-Public Use
  Company Number: PHHY2008MX17035

PATIENT
  Age: 66 Year
  Sex: Female

DRUGS (1)
  1. DIOVAN [Suspect]
     Indication: HYPERTENSION
     Dosage: 80 MG, QD
     Route: 048
     Dates: start: 20080801

REACTIONS (4)
  - ARRHYTHMIA [None]
  - BURNING SENSATION [None]
  - FEELING HOT [None]
  - TREMOR [None]
